FAERS Safety Report 13940800 (Version 2)
Quarter: 2018Q3

REPORT INFORMATION
  Report Type: Spontaneous
  Country: DE (occurrence: DE)
  Receive Date: 20170906
  Receipt Date: 20180711
  Transmission Date: 20181010
  Serious: Yes (Hospitalization)
  Sender: FDA-Public Use
  Company Number: DE-DSJP-DSE-2017-134909

PATIENT

DRUGS (3)
  1. LIXIANA [Suspect]
     Active Substance: EDOXABAN TOSYLATE
     Indication: HYPERCOAGULATION
     Dosage: 60 MG, QD
     Route: 048
     Dates: start: 20170718
  2. CLIVARIN [Concomitant]
     Indication: HYPERCOAGULATION
     Dosage: 5726 IU, QD
     Route: 058
     Dates: start: 20170710, end: 20170717
  3. RASILEZ [Concomitant]
     Active Substance: ALISKIREN
     Indication: HYPERTENSION
     Dosage: 300 MG, QD
     Route: 048

REACTIONS (2)
  - Lacunar infarction [Not Recovered/Not Resolved]
  - Paraesthesia [Not Recovered/Not Resolved]

NARRATIVE: CASE EVENT DATE: 20170718
